FAERS Safety Report 6273289 (Version 3)
Quarter: 2013Q2

REPORT INFORMATION
  Report Type: Spontaneous
  Country: US (occurrence: US)
  Receive Date: 20070328
  Receipt Date: 20130425
  Transmission Date: 20140414
  Serious: Yes (Hospitalization, Other)
  Sender: FDA-Public Use
  Company Number: PHEH2007US03393

PATIENT
  Age: 63 Year
  Sex: Female
  Weight: 86.17 kg

DRUGS (11)
  1. VIVELLE [Suspect]
     Indication: HORMONE REPLACEMENT THERAPY
  2. VIVELLE DOT [Suspect]
     Indication: HORMONE REPLACEMENT THERAPY
  3. ESTRACE [Suspect]
     Indication: NIGHT SWEATS
  4. ESTRATAB [Suspect]
     Indication: NIGHT SWEATS
     Dosage: 0.625 MG, QD
  5. ESTROPIPATE [Suspect]
     Indication: AMNESIA
     Dosage: 1 MG, UNK
  6. PREMPRO [Suspect]
     Indication: AMNESIA
  7. PREMARIN [Suspect]
     Indication: AFFECTIVE DISORDER
     Dosage: 0.625 MG, UNK
  8. PROVERA [Suspect]
     Indication: HORMONE REPLACEMENT THERAPY
     Dosage: 2.5 MG, QD
  9. FISH OIL [Concomitant]
     Dosage: 2000 MG, QD
  10. ALPRAZOLAM [Concomitant]
     Dosage: 0.5 MG, PRN
  11. CELEBREX [Concomitant]
     Dosage: 100 MG, QD

REACTIONS (10)
  - Invasive ductal breast carcinoma [Unknown]
  - Breast mass [Unknown]
  - Depression [Unknown]
  - Limb discomfort [Unknown]
  - Oedema peripheral [Unknown]
  - Lung infiltration [Recovering/Resolving]
  - Haemangioma of liver [Unknown]
  - Foreign body reaction [Unknown]
  - Adenocarcinoma [Unknown]
  - Metastases to lymph nodes [Unknown]
